FAERS Safety Report 4923303-0 (Version None)
Quarter: 2006Q1

REPORT INFORMATION
  Report Type: 
  Country: None (occurrence: None)
  Receive Date: 20060223
  Receipt Date: 20060223
  Transmission Date: 20060701
  Serious: Yes (Hospitalization)
  Sender: FDA-Public Use
  Company Number: None

PATIENT
  Sex: Female
  Weight: 58.9676 kg

DRUGS (8)
  1. KETEK [Suspect]
     Indication: INFECTION
     Dosage: 800 MG DAILY PO
     Route: 048
  2. NORTRIPTYLINE 50 MG [Suspect]
     Indication: DEPRESSION
     Dosage: 150 MG BEDTIME PO
     Route: 048
  3. XANAX [Concomitant]
  4. AMBIEN [Concomitant]
  5. DIOVAN [Concomitant]
  6. FLEXERIL [Concomitant]
  7. COUMADIN [Concomitant]
  8. NEXIUM [Concomitant]

REACTIONS (5)
  - ELECTROCARDIOGRAM QT CORRECTED INTERVAL PROLONGED [None]
  - PALPITATIONS [None]
  - SINUS TACHYCARDIA [None]
  - SUPRAVENTRICULAR TACHYCARDIA [None]
  - THERAPY NON-RESPONDER [None]
